FAERS Safety Report 24803200 (Version 2)
Quarter: 2025Q1

REPORT INFORMATION
  Report Type: Spontaneous
  Country: US (occurrence: US)
  Receive Date: 20250103
  Receipt Date: 20250225
  Transmission Date: 20250409
  Serious: No
  Sender: ASTELLAS
  Company Number: US-ASTELLAS-2024-AER-028339

PATIENT
  Age: 6 Decade
  Sex: Female

DRUGS (3)
  1. VEOZAH [Interacting]
     Active Substance: FEZOLINETANT
     Indication: Menopausal symptoms
     Route: 065
  2. PHENTERMINE [Interacting]
     Active Substance: PHENTERMINE
     Indication: Product used for unknown indication
     Route: 065
     Dates: start: 202411, end: 20241227
  3. LEVOTHYROXINE [Concomitant]
     Active Substance: LEVOTHYROXINE
     Indication: Product used for unknown indication
     Route: 065

REACTIONS (3)
  - Blood alkaline phosphatase increased [Unknown]
  - Aspartate aminotransferase increased [Unknown]
  - Drug interaction [Unknown]
